FAERS Safety Report 4666381-9 (Version None)
Quarter: 2005Q2

REPORT INFORMATION
  Report Type: 
  Country: None (occurrence: None)
  Receive Date: 20050518
  Receipt Date: 20050427
  Transmission Date: 20051028
  Serious: Yes (Hospitalization)
  Sender: FDA-Public Use
  Company Number: AE2005-0224

PATIENT
  Age: 48 Year
  Sex: Male

DRUGS (14)
  1. MUCINEX DM [Suspect]
     Indication: COUGH
     Dosage: MG QD ORAL
     Route: 048
     Dates: start: 20050412, end: 20050423
  2. VALIUM [Concomitant]
  3. ASPIRIN [Concomitant]
  4. OXYCONTIN [Concomitant]
  5. RISPERDAL [Concomitant]
  6. TEMAZEPAM [Concomitant]
  7. NEXIUM [Concomitant]
  8. LORCET-HD [Concomitant]
  9. LIPITOR [Concomitant]
  10. MULTIVITAMIN WITH IRON [Concomitant]
  11. GLIPIZIDE [Concomitant]
  12. ZOLOFT [Concomitant]
  13. SOMA [Concomitant]
  14. METOPROLOL [Concomitant]

REACTIONS (1)
  - CEREBROVASCULAR ACCIDENT [None]
